FAERS Safety Report 8877458 (Version 1)
Quarter: 2012Q4

REPORT INFORMATION
  Report Type: 
  Country: US (occurrence: US)
  Receive Date: 20121024
  Receipt Date: 20121024
  Transmission Date: 20130627
  Serious: No
  Sender: FDA-Public Use
  Company Number: US-PFIZER INC-2012261107

PATIENT
  Age: 10 Year
  Sex: Female
  Weight: 60.77 kg

DRUGS (1)
  1. AZITHROMYCIN [Suspect]
     Indication: PHARYNGITIS
     Dosage: 500 mg (two 250mg) , 1x/day
     Route: 048
     Dates: start: 20121017

REACTIONS (4)
  - Drug prescribing error [Unknown]
  - Drug administration error [Unknown]
  - Abdominal pain upper [Recovered/Resolved]
  - Diarrhoea [Recovered/Resolved]
